FAERS Safety Report 21727918 (Version 1)
Quarter: 2022Q4

REPORT INFORMATION
  Report Type: Spontaneous
  Country: US (occurrence: None)
  Receive Date: 20221213
  Receipt Date: 20221213
  Transmission Date: 20230113
  Serious: No
  Sender: FDA-Public Use
  Company Number: None

PATIENT
  Age: 73 Year
  Sex: Female
  Weight: 90.22 kg

DRUGS (15)
  1. CAPECITABINE [Suspect]
     Active Substance: CAPECITABINE
     Indication: Colon cancer
  2. ATORVASTATIN CALCIUM [Concomitant]
     Active Substance: ATORVASTATIN CALCIUM
  3. AVASTIN [Concomitant]
     Active Substance: BEVACIZUMAB
  4. CLONAZEPAM [Concomitant]
     Active Substance: CLONAZEPAM
  5. COENZYME Q10 [Concomitant]
     Active Substance: DIETARY SUPPLEMENT\UBIDECARENONE
  6. D3 HIGH POTENCY [Concomitant]
  7. KRILL OIL [Concomitant]
     Active Substance: DIETARY SUPPLEMENT\KRILL OIL
  8. LEVOTHYROXINE [Concomitant]
     Active Substance: LEVOTHYROXINE
  9. MAGNESIUM OXIDE [Concomitant]
     Active Substance: MAGNESIUM OXIDE
  10. VITAMINS [Concomitant]
     Active Substance: VITAMINS
  11. OMEGA 3 [Concomitant]
     Active Substance: CAPSAICIN
  12. PEPCID [Concomitant]
     Active Substance: FAMOTIDINE
  13. DIETARY SUPPLEMENT\RESVERATROL [Concomitant]
     Active Substance: DIETARY SUPPLEMENT\RESVERATROL
  14. SEROQUEL [Concomitant]
     Active Substance: QUETIAPINE FUMARATE
  15. XARELTO [Concomitant]
     Active Substance: RIVAROXABAN

REACTIONS (5)
  - Hepatic enzyme increased [None]
  - Blood bilirubin increased [None]
  - Red blood cell count decreased [None]
  - Platelet count decreased [None]
  - Diarrhoea [None]
